FAERS Safety Report 15461270 (Version 3)
Quarter: 2018Q4

REPORT INFORMATION
  Report Type: Report from Study
  Country: CO (occurrence: CO)
  Receive Date: 20181003
  Receipt Date: 20181018
  Transmission Date: 20190204
  Serious: Yes (Hospitalization, Other)
  Sender: FDA-Public Use
  Company Number: PHHY2018CO114986

PATIENT
  Sex: Male
  Weight: 94 kg

DRUGS (2)
  1. SIGNIFOR LAR [Suspect]
     Active Substance: PASIREOTIDE
     Indication: ACROMEGALY
     Dosage: 40 MG, QMO
     Route: 030
     Dates: start: 201804, end: 20180625
  2. SIGNIFOR LAR [Suspect]
     Active Substance: PASIREOTIDE
     Dosage: 40 MG, QD
     Route: 030

REACTIONS (5)
  - Migraine [Recovering/Resolving]
  - Product prescribing error [Unknown]
  - Sinusitis [Recovering/Resolving]
  - Facial pain [Recovering/Resolving]
  - Neoplasm [Unknown]
